FAERS Safety Report 4618925-0 (Version None)
Quarter: 2005Q2

REPORT INFORMATION
  Report Type: 
  Country: None (occurrence: None)
  Receive Date: 20050310
  Receipt Date: 20030630
  Transmission Date: 20051028
  Serious: Yes (Hospitalization)
  Sender: FDA-Public Use
  Company Number: F03200300010

PATIENT
  Age: 62 Year
  Sex: Female

DRUGS (10)
  1. OXALIPLATIN - SOLUTION - UNIT DOSE  :  UNKNOWN [Suspect]
     Indication: COLORECTAL CANCER METASTATIC
     Dosage: 85 MG/M2 OTHER - INTRAVENOUS NOS
     Route: 042
     Dates: start: 20030514, end: 20030514
  2. CETUXIMAB - SOLUTION [Suspect]
     Indication: COLORECTAL CANCER
     Dosage: LOADING DOSE: 660 MG - INTRAVENOUS NOS
     Route: 042
     Dates: start: 20030526, end: 20030526
  3. FLUOROURACIL [Suspect]
     Indication: COLORECTAL CANCER METASTATIC
     Dosage: 400MG/M2 AND 600MG/M2 - INTRAVENOUS NOS
     Route: 042
     Dates: start: 20030514, end: 20030514
  4. LEUCOVORIN CALCIUM [Suspect]
     Indication: COLORECTAL CANCER METASTATIC
     Dosage: DOSE: 200MG/M2 - INTRAVENOUS NOS
     Route: 042
     Dates: start: 20030514, end: 20030514
  5. DEXAMETHASONE [Suspect]
     Dates: start: 20030409
  6. RISEDRONATE SODIUM [Concomitant]
  7. TRIAMCINOLONE ACETONIDE [Concomitant]
  8. ALBUTEROL [Concomitant]
  9. ENOXAPARIN SODIUM [Concomitant]
  10. METOPROLOL SUCCINATE [Concomitant]

REACTIONS (3)
  - PNEUMONIA [None]
  - PRODUCTIVE COUGH [None]
  - PYREXIA [None]
